FAERS Safety Report 24313577 (Version 2)
Quarter: 2024Q4

REPORT INFORMATION
  Report Type: Report from Study
  Country: US (occurrence: US)
  Receive Date: 20240912
  Receipt Date: 20241002
  Transmission Date: 20250114
  Serious: Yes (Hospitalization)
  Sender: EISAI
  Company Number: US-Eisai-EC-2024-173982

PATIENT
  Age: 40 Year
  Sex: Female

DRUGS (4)
  1. LENVATINIB MESYLATE [Suspect]
     Active Substance: LENVATINIB MESYLATE
     Indication: Triple negative breast cancer
     Dosage: DOSE AND FREQUENCY UNKNOWN
     Route: 048
     Dates: start: 20240813, end: 20240902
  2. PEMBROLIZUMAB [Suspect]
     Active Substance: PEMBROLIZUMAB
     Indication: Triple negative breast cancer
     Dosage: DOSE AND FREQUENCY UNKNOWN
     Route: 042
     Dates: start: 20240813, end: 20240813
  3. LATISSE [Concomitant]
     Active Substance: BIMATOPROST
     Dates: start: 20230718
  4. XGEVA [Concomitant]
     Active Substance: DENOSUMAB
     Dates: start: 20240402

REACTIONS (2)
  - Aspartate aminotransferase increased [Recovered/Resolved]
  - Alanine aminotransferase increased [Recovered/Resolved]

NARRATIVE: CASE EVENT DATE: 20240903
